FAERS Safety Report 9189883 (Version 1)
Quarter: 2013Q1

REPORT INFORMATION
  Report Type: Spontaneous
  Country: CH (occurrence: CH)
  Receive Date: 20130326
  Receipt Date: 20130326
  Transmission Date: 20140127
  Serious: Yes (Hospitalization, Other)
  Sender: FDA-Public Use
  Company Number: CH-PFIZER INC-2013092865

PATIENT
  Age: 39 Year
  Sex: Female

DRUGS (4)
  1. SOLU-MEDROL [Suspect]
     Indication: HYPERSENSITIVITY
     Dosage: 125 MG, UNK
     Route: 041
     Dates: start: 20130220, end: 20130220
  2. MORPHINE [Suspect]
     Indication: PAIN
     Dosage: 5 MG, UNK
     Route: 040
     Dates: start: 20130220, end: 20130220
  3. TAVEGYL [Suspect]
     Indication: HYPERSENSITIVITY
     Dosage: 2 MG, UNK
     Route: 041
     Dates: start: 20130220, end: 20130220
  4. KYTRIL [Suspect]
     Indication: NAUSEA
     Dosage: 1 MG, UNK
     Route: 041
     Dates: start: 20130220, end: 20130220

REACTIONS (6)
  - Type I hypersensitivity [Recovered/Resolved]
  - Urticaria [Recovered/Resolved]
  - Pruritus [Recovered/Resolved]
  - Malaise [Unknown]
  - Nausea [Recovered/Resolved]
  - Convulsion [Recovered/Resolved]
